FAERS Safety Report 7786457-7 (Version None)
Quarter: 2011Q3

REPORT INFORMATION
  Report Type: 
  Country: None (occurrence: None)
  Receive Date: 20110928
  Receipt Date: 20110928
  Transmission Date: 20111222
  Serious: No
  Sender: FDA-Public Use
  Company Number: None

PATIENT

DRUGS (1)
  1. ACETAMINOPHEN AND OXYCODONE HCL [Suspect]

REACTIONS (5)
  - ABDOMINAL DISTENSION [None]
  - TABLET PHYSICAL ISSUE [None]
  - LIVER DISORDER [None]
  - RENAL DISORDER [None]
  - PAIN [None]
